FAERS Safety Report 9160624 (Version 2)
Quarter: 2013Q1

REPORT INFORMATION
  Report Type: Spontaneous
  Country: ES (occurrence: ES)
  Receive Date: 20130313
  Receipt Date: 20130325
  Transmission Date: 20140127
  Serious: Yes (Hospitalization)
  Sender: FDA-Public Use
  Company Number: ES-ABBOTT-13X-144-1060602-00

PATIENT
  Age: 89 Year
  Sex: Male

DRUGS (7)
  1. PROCRIN [Suspect]
     Indication: PROSTATE CANCER
     Route: 058
     Dates: start: 20100208, end: 20120801
  2. TEVETEN HCT [Suspect]
     Indication: HYPERTENSION
     Dosage: UNIT DOSE,DAILY DOSE AND FORM STRENGTH:EPROSARTAN MESILATE/HIDROCLOROTIAZIDE600MG/12.5MG
     Route: 048
     Dates: start: 20110410, end: 20120801
  3. SUPREFACT [Suspect]
     Indication: PROSTATE CANCER
     Route: 058
     Dates: start: 20100208, end: 20120801
  4. ADIRO [Concomitant]
     Indication: CARDIOVASCULAR EVENT PROPHYLAXIS
     Route: 048
     Dates: start: 2005
  5. COROPRES [Concomitant]
     Indication: PRODUCT USED FOR UNKNOWN INDICATION
     Route: 048
     Dates: start: 2005
  6. SERETIDE [Concomitant]
     Indication: CHRONIC OBSTRUCTIVE PULMONARY DISEASE
     Dosage: FORM OF STRENGTH: SALMETEROL/FLUTICASONE 25MCG/125MCG
     Route: 055
     Dates: start: 2001
  7. SPIRIVA [Concomitant]
     Indication: CHRONIC OBSTRUCTIVE PULMONARY DISEASE
     Route: 055
     Dates: start: 2001

REACTIONS (12)
  - Chronic hepatitis [Not Recovered/Not Resolved]
  - Hepatic lesion [Unknown]
  - Hepatic cyst [Unknown]
  - Granulomatous liver disease [Unknown]
  - Periportal oedema [Unknown]
  - Cholelithiasis [Unknown]
  - Lymphadenopathy [Unknown]
  - Epstein-Barr virus antibody positive [Unknown]
  - Herpes simplex serology positive [Unknown]
  - Parvovirus B19 test positive [Unknown]
  - Varicella virus test positive [Unknown]
  - Hepatotoxicity [None]
